FAERS Safety Report 21445010 (Version 1)
Quarter: 2022Q4

REPORT INFORMATION
  Report Type: Spontaneous
  Country: KR (occurrence: KR)
  Receive Date: 20221012
  Receipt Date: 20221012
  Transmission Date: 20230113
  Serious: Yes (Other)
  Sender: FDA-Public Use
  Company Number: KR-ASTELLAS-2022US035902

PATIENT
  Age: 71 Year
  Sex: Male

DRUGS (3)
  1. VESICARE [Suspect]
     Active Substance: SOLIFENACIN SUCCINATE
     Indication: Pollakiuria
     Route: 065
     Dates: start: 2022
  2. MIRABEGRON [Suspect]
     Active Substance: MIRABEGRON
     Indication: Micturition urgency
     Route: 065
  3. ALFUZOSIN [Concomitant]
     Active Substance: ALFUZOSIN
     Indication: Benign prostatic hyperplasia
     Dosage: UNK UNK, ONCE DAILY (ONCE DAILY BEFORE BED)
     Route: 065

REACTIONS (3)
  - Erectile dysfunction [Unknown]
  - Libido decreased [Unknown]
  - Disease progression [Not Recovered/Not Resolved]
